FAERS Safety Report 9574441 (Version 1)
Quarter: 2013Q4

REPORT INFORMATION
  Report Type: Spontaneous
  Country: US (occurrence: US)
  Receive Date: 20131001
  Receipt Date: 20131001
  Transmission Date: 20140711
  Serious: Yes (Other)
  Sender: FDA-Public Use
  Company Number: US-BAYER-2013-116694

PATIENT
  Age: 80 Year
  Sex: Male
  Weight: 88.44 kg

DRUGS (4)
  1. ALEVE CAPLET [Suspect]
     Indication: BACK PAIN
     Dosage: 1 DF, PRN
     Route: 048
     Dates: start: 201307, end: 201307
  2. METFORMIN [Concomitant]
  3. TAMSULOSIN [Concomitant]
  4. ATORVASTATIN [Concomitant]

REACTIONS (6)
  - Nephrolithiasis [Not Recovered/Not Resolved]
  - Aneurysm [Not Recovered/Not Resolved]
  - Cholelithiasis [Not Recovered/Not Resolved]
  - Gastrointestinal pain [Not Recovered/Not Resolved]
  - Extra dose administered [None]
  - Chest pain [Not Recovered/Not Resolved]
